FAERS Safety Report 12916621 (Version 1)
Quarter: 2016Q4

REPORT INFORMATION
  Report Type: Spontaneous
  Country: US (occurrence: US)
  Receive Date: 20161107
  Receipt Date: 20161107
  Transmission Date: 20170207
  Serious: No
  Sender: FDA-Public Use
  Company Number: US-JAZZ-2016-US-017295

PATIENT
  Sex: Female

DRUGS (27)
  1. XYREM [Suspect]
     Active Substance: SODIUM OXYBATE
     Indication: NARCOLEPSY
     Dosage: 2.25 G, BID
     Route: 048
     Dates: start: 201507, end: 201507
  2. XYREM [Suspect]
     Active Substance: SODIUM OXYBATE
     Dosage: DOSE ADJUSTMENTS
     Route: 048
     Dates: start: 201507, end: 201511
  3. CHLORZOXAZONE. [Concomitant]
     Active Substance: CHLORZOXAZONE
  4. XYREM [Suspect]
     Active Substance: SODIUM OXYBATE
     Dosage: 4 G, BID
     Route: 048
     Dates: start: 201511
  5. AMBIEN [Concomitant]
     Active Substance: ZOLPIDEM TARTRATE
  6. EXCEDRIN MIGRAINE [Concomitant]
     Active Substance: ACETAMINOPHEN\ASPIRIN\CAFFEINE
  7. VYVANSE [Concomitant]
     Active Substance: LISDEXAMFETAMINE DIMESYLATE
  8. DIFLUCAN [Concomitant]
     Active Substance: FLUCONAZOLE
  9. KEPPRA [Concomitant]
     Active Substance: LEVETIRACETAM
  10. PROVIGIL [Concomitant]
     Active Substance: MODAFINIL
  11. BENADRYL ALLERGY [Concomitant]
     Active Substance: DIPHENHYDRAMINE HYDROCHLORIDE
  12. IBUPROFEN. [Concomitant]
     Active Substance: IBUPROFEN
  13. LYRICA [Concomitant]
     Active Substance: PREGABALIN
  14. ZANTAC [Concomitant]
     Active Substance: RANITIDINE HYDROCHLORIDE
  15. DICYCLOMINE [Concomitant]
     Active Substance: DICYCLOMINE HYDROCHLORIDE
  16. SKELAXIN [Concomitant]
     Active Substance: METAXALONE
  17. LUNESTA [Concomitant]
     Active Substance: ESZOPICLONE
  18. VENTOLIN HFA [Concomitant]
     Active Substance: ALBUTEROL SULFATE
  19. AMOXICILLIN. [Concomitant]
     Active Substance: AMOXICILLIN
  20. FLUTICASONE PROPRIONATE [Concomitant]
     Active Substance: FLUTICASONE PROPIONATE
  21. KLONOPIN [Concomitant]
     Active Substance: CLONAZEPAM
  22. TRAMADOL. [Concomitant]
     Active Substance: TRAMADOL
  23. CLONAZEPAM. [Concomitant]
     Active Substance: CLONAZEPAM
  24. PROBIOTIC [Concomitant]
     Active Substance: PROBIOTICS NOS
  25. LORZONE [Concomitant]
     Active Substance: CHLORZOXAZONE
  26. RANITIDINE. [Concomitant]
     Active Substance: RANITIDINE
  27. ZOLOFT [Concomitant]
     Active Substance: SERTRALINE HYDROCHLORIDE

REACTIONS (2)
  - Sinusitis [Unknown]
  - Liver disorder [Unknown]

NARRATIVE: CASE EVENT DATE: 2016
